FAERS Safety Report 24206047 (Version 1)
Quarter: 2024Q3

REPORT INFORMATION
  Report Type: Spontaneous
  Country: US (occurrence: US)
  Receive Date: 20240813
  Receipt Date: 20240813
  Transmission Date: 20241017
  Serious: No
  Sender: DR REDDYS
  Company Number: US-DRL-USA-LIT/USA/24/0011579

PATIENT
  Age: 45 Year
  Sex: Female

DRUGS (4)
  1. CYCLOSPORINE [Suspect]
     Active Substance: CYCLOSPORINE
     Indication: Neurodermatitis
  2. METHOTREXATE [Concomitant]
     Active Substance: METHOTREXATE
     Indication: Neurodermatitis
     Route: 048
  3. CAPSAICIN [Concomitant]
     Active Substance: CAPSAICIN
     Indication: Neurodermatitis
  4. CALCIPOTRIENE [Concomitant]
     Active Substance: CALCIPOTRIENE
     Indication: Neurodermatitis

REACTIONS (1)
  - Drug ineffective for unapproved indication [Unknown]
